FAERS Safety Report 10111942 (Version 2)
Quarter: 2014Q4

REPORT INFORMATION
  Report Type: Other
  Country: US (occurrence: US)
  Receive Date: 20140425
  Receipt Date: 20141231
  Transmission Date: 20150528
  Serious: Yes (Hospitalization, Other)
  Sender: FDA-Public Use
  Company Number: US-GSKPPD-2014GSK009925

PATIENT
  Age: 69 Year
  Sex: Female

DRUGS (4)
  1. LOPRESSOR [Concomitant]
     Active Substance: METOPROLOL TARTRATE
  2. AVANDIA [Suspect]
     Active Substance: ROSIGLITAZONE MALEATE
     Indication: DIABETES MELLITUS
     Dosage: AVANDIA WAS NOT LISTED AMONG THE PATIENTS RECORDS REVIEWED.
     Route: 048
  3. LOTENSIN [Concomitant]
     Active Substance: BENAZEPRIL HYDROCHLORIDE
  4. NITROGLYCERIN. [Concomitant]
     Active Substance: NITROGLYCERIN
     Route: 062

REACTIONS (1)
  - Cerebrovascular accident [Recovered/Resolved]

NARRATIVE: CASE EVENT DATE: 20010122
